FAERS Safety Report 21392145 (Version 1)
Quarter: 2022Q3

REPORT INFORMATION
  Report Type: Spontaneous
  Country: JP (occurrence: JP)
  Receive Date: 20220929
  Receipt Date: 20220929
  Transmission Date: 20221027
  Serious: Yes (Death, Other)
  Sender: FDA-Public Use
  Company Number: JP-JAZZ-2022-JP-030958

PATIENT
  Age: 35 Year
  Sex: Male
  Weight: 59.7 kg

DRUGS (2)
  1. DEFITELIO [Suspect]
     Active Substance: DEFIBROTIDE SODIUM
     Indication: Venoocclusive liver disease
     Dosage: 25 MILLIGRAM/KILOGRAM/KG/24 HOURS
     Route: 042
     Dates: start: 20220628, end: 20220801
  2. DEFITELIO [Suspect]
     Active Substance: DEFIBROTIDE SODIUM
     Dosage: 12 MILLIGRAM/KILOGRAM/KG/24 HOURS
     Route: 042
     Dates: start: 20220802, end: 20220802

REACTIONS (1)
  - Chronic myelomonocytic leukaemia [Fatal]
